FAERS Safety Report 5812144-8 (Version None)
Quarter: 2008Q3

REPORT INFORMATION
  Report Type: 
  Country: None (occurrence: None)
  Receive Date: 20080714
  Receipt Date: 20080704
  Transmission Date: 20090109
  Serious: Yes (Other)
  Sender: FDA-Public Use
  Company Number: 2008JP003153

PATIENT
  Age: 65 Year
  Sex: Male

DRUGS (2)
  1. VESICARE [Suspect]
     Dosage: 5 MG, UNKNOWN/D, ORAL
     Route: 048
     Dates: start: 20080611, end: 20080627
  2. ZONISAMIDE [Concomitant]

REACTIONS (1)
  - CONVULSION [None]
